FAERS Safety Report 12308463 (Version 4)
Quarter: 2017Q1

REPORT INFORMATION
  Report Type: Report from Study
  Country: US (occurrence: US)
  Receive Date: 20160427
  Receipt Date: 20170113
  Transmission Date: 20170428
  Serious: Yes (Death, Hospitalization, Other)
  Sender: FDA-Public Use
  Company Number: PHEH2016US009981

PATIENT
  Age: 84 Year
  Sex: Male
  Weight: 159.2 kg

DRUGS (30)
  1. ELIQUIS [Concomitant]
     Active Substance: APIXABAN
     Dosage: 2.5 MG, BID
     Route: 048
     Dates: start: 20160901
  2. KLOR-CON M20 [Concomitant]
     Active Substance: POTASSIUM CHLORIDE
     Indication: PRODUCT USED FOR UNKNOWN INDICATION
     Dosage: 1 DF, QD
     Route: 048
     Dates: start: 20141013
  3. METOPROLOL TARTRATE. [Concomitant]
     Active Substance: METOPROLOL TARTRATE
     Indication: PRODUCT USED FOR UNKNOWN INDICATION
     Dosage: 1 DF, UNK
     Route: 048
     Dates: start: 20141013
  4. SIMVASTATIN. [Concomitant]
     Active Substance: SIMVASTATIN
     Dosage: 2 DF (40 MG), QD (IN THE EVENING)
     Route: 048
     Dates: start: 20160901
  5. LORAZEPAM. [Concomitant]
     Active Substance: LORAZEPAM
     Dosage: 1 DF, BID (AS NEEDED)
     Route: 048
     Dates: start: 20160726
  6. LORAZEPAM. [Concomitant]
     Active Substance: LORAZEPAM
     Dosage: 1 DF, QHS
     Route: 048
     Dates: start: 20161019
  7. PHENAZOPYRIDINE HYDROCHLORIDE. [Concomitant]
     Active Substance: PHENAZOPYRIDINE HYDROCHLORIDE
     Indication: PRODUCT USED FOR UNKNOWN INDICATION
     Dosage: 1 DF, TID (AFTER MEALS)
     Route: 048
     Dates: start: 20161011
  8. LASIX [Concomitant]
     Active Substance: FUROSEMIDE
     Dosage: 2 DF, BID
     Route: 048
     Dates: start: 20160712
  9. METOPROLOL TARTRATE. [Concomitant]
     Active Substance: METOPROLOL TARTRATE
     Dosage: 0.5 DF, BID
     Route: 048
     Dates: start: 20151209
  10. METOLAZONE. [Concomitant]
     Active Substance: METOLAZONE
     Indication: PRODUCT USED FOR UNKNOWN INDICATION
     Dosage: 1 DF, QD
     Route: 048
     Dates: start: 20160712
  11. LASIX [Concomitant]
     Active Substance: FUROSEMIDE
     Dosage: 0.5 DF, BID
     Route: 048
     Dates: start: 20160901
  12. KLOR-CON M20 [Concomitant]
     Active Substance: POTASSIUM CHLORIDE
     Dosage: 1 DF, QD
     Route: 048
     Dates: start: 20160421
  13. NITRO [Concomitant]
     Active Substance: NITROGLYCERIN
     Indication: CHEST PAIN
     Dosage: 1 DF, UNK
     Route: 060
     Dates: start: 20120807
  14. OMEPRAZOLE. [Concomitant]
     Active Substance: OMEPRAZOLE
     Indication: PRODUCT USED FOR UNKNOWN INDICATION
     Dosage: 1 DF, QD
     Route: 048
     Dates: start: 20160712
  15. TAMSULOSIN [Concomitant]
     Active Substance: TAMSULOSIN
     Indication: PRODUCT USED FOR UNKNOWN INDICATION
     Dosage: 1 DF, QD (HALF AN HOUR FOLLOWING MEALS)
     Route: 048
  16. ENTRESTO [Suspect]
     Active Substance: SACUBITRIL\VALSARTAN
     Dosage: 100 MG (49/51 MG), UNK
     Route: 048
     Dates: start: 20160712
  17. IMDUR [Concomitant]
     Active Substance: ISOSORBIDE MONONITRATE
     Dosage: 2 DF (30 MG), QD (IN THE MORNING)
     Route: 048
     Dates: start: 20160712
  18. ENTRESTO [Suspect]
     Active Substance: SACUBITRIL\VALSARTAN
     Indication: PRODUCT USED FOR UNKNOWN INDICATION
     Dosage: 50 MG (24/26 MG), BID
     Route: 048
     Dates: start: 20160421
  19. LASIX [Concomitant]
     Active Substance: FUROSEMIDE
     Indication: PRODUCT USED FOR UNKNOWN INDICATION
     Dosage: 1 DF, UNK
     Route: 048
     Dates: start: 20160412
  20. NITRO [Concomitant]
     Active Substance: NITROGLYCERIN
     Dosage: 1 DF, PRN
     Route: 060
     Dates: start: 20160712
  21. ASPIRIN. [Concomitant]
     Active Substance: ASPIRIN
     Indication: PRODUCT USED FOR UNKNOWN INDICATION
     Dosage: 1 DF, QD
     Route: 048
     Dates: start: 20150625
  22. LORAZEPAM. [Concomitant]
     Active Substance: LORAZEPAM
     Indication: PRODUCT USED FOR UNKNOWN INDICATION
     Dosage: 1 DF, BID
     Route: 048
     Dates: start: 20160712
  23. ENTRESTO [Suspect]
     Active Substance: SACUBITRIL\VALSARTAN
     Dosage: 50 MG (24/26 MG), BID
     Route: 048
     Dates: start: 20160923
  24. KLOR-CON M20 [Concomitant]
     Active Substance: POTASSIUM CHLORIDE
     Dosage: 1 DF, QD
     Route: 048
     Dates: start: 20160901
  25. SIMVASTATIN. [Concomitant]
     Active Substance: SIMVASTATIN
     Indication: DYSLIPIDAEMIA
     Dosage: 80 MG, UNK
     Route: 048
     Dates: start: 20110725
  26. SIMVASTATIN. [Concomitant]
     Active Substance: SIMVASTATIN
     Indication: HYPERLIPIDAEMIA
     Dosage: 1 DF (40 MG), QD (EVENING)
     Route: 048
     Dates: start: 20160614
  27. ELIQUIS [Concomitant]
     Active Substance: APIXABAN
     Indication: PRODUCT USED FOR UNKNOWN INDICATION
     Dosage: 5 MG, UNK
     Route: 048
     Dates: start: 20160125
  28. IMDUR [Concomitant]
     Active Substance: ISOSORBIDE MONONITRATE
     Indication: PRODUCT USED FOR UNKNOWN INDICATION
     Dosage: 60 MG, QD (ONCE IN THE MORNING))
     Route: 048
     Dates: start: 20120806
  29. GLIPIZIDE. [Concomitant]
     Active Substance: GLIPIZIDE
     Indication: TYPE 2 DIABETES MELLITUS
     Dosage: 0.5 DF, BID (BEFORE MEALS)
     Route: 048
     Dates: start: 20160125
  30. DULCOLAX NOS [Concomitant]
     Active Substance: BISACODYL OR DOCUSATE SODIUM
     Indication: CONSTIPATION
     Dosage: 1 DF, PRN
     Route: 054
     Dates: start: 20160712

REACTIONS (17)
  - Hypotension [Unknown]
  - Dizziness postural [Unknown]
  - Dyspnoea exertional [Recovering/Resolving]
  - Blood urea increased [Recovering/Resolving]
  - Blood creatinine increased [Recovering/Resolving]
  - Lead dislodgement [Unknown]
  - Dyspnoea [Unknown]
  - Dysphagia [Unknown]
  - Lethargy [Recovering/Resolving]
  - Ventricular dyssynchrony [Unknown]
  - Ventricular tachycardia [Unknown]
  - Fatigue [Recovering/Resolving]
  - Cardiac failure congestive [Unknown]
  - Tremor [Unknown]
  - Death [Fatal]
  - Decreased appetite [Recovering/Resolving]
  - Nausea [Unknown]

NARRATIVE: CASE EVENT DATE: 20160516
